APPROVED DRUG PRODUCT: GUAIFENESIN AND DEXTROMETHORPHAN HYDROBROMIDE
Active Ingredient: DEXTROMETHORPHAN HYDROBROMIDE; GUAIFENESIN
Strength: 30MG;600MG
Dosage Form/Route: TABLET, EXTENDED RELEASE;ORAL
Application: A206941 | Product #001
Applicant: AUROBINDO PHARMA LTD
Approved: Mar 17, 2017 | RLD: No | RS: No | Type: OTC